APPROVED DRUG PRODUCT: ESZOPICLONE
Active Ingredient: ESZOPICLONE
Strength: 1MG
Dosage Form/Route: TABLET;ORAL
Application: A091169 | Product #001 | TE Code: AB
Applicant: TEVA PHARMACEUTICALS USA INC
Approved: May 23, 2011 | RLD: No | RS: No | Type: RX